FAERS Safety Report 7084768-4 (Version None)
Quarter: 2010Q4

REPORT INFORMATION
  Report Type: 
  Country: None (occurrence: None)
  Receive Date: 20101105
  Receipt Date: 20101026
  Transmission Date: 20110411
  Serious: Yes (Hospitalization, Other)
  Sender: FDA-Public Use
  Company Number: US-BIOGENIDEC-2010BI010989

PATIENT
  Age: 72 Year
  Sex: Male
  Weight: 88 kg

DRUGS (23)
  1. TYSABRI [Suspect]
     Indication: MULTIPLE SCLEROSIS
     Route: 042
     Dates: start: 20071009, end: 20090331
  2. TYSABRI [Suspect]
     Route: 042
     Dates: start: 20091022
  3. METAMUCIL-2 [Concomitant]
  4. DOCUSATE SODIUM [Concomitant]
     Route: 048
  5. BACLOFEN [Concomitant]
     Route: 048
  6. NABUMETONE [Concomitant]
     Route: 048
  7. VITAMIN D [Concomitant]
     Route: 048
  8. CALCIUM [Concomitant]
     Route: 048
  9. SIMVASTATIN [Concomitant]
     Route: 048
  10. METOPROLOL SUCCINATE [Concomitant]
     Route: 048
  11. TRAZODONE [Concomitant]
     Route: 048
  12. ACETAMINOPHEN [Concomitant]
     Route: 048
  13. ALEVE (CAPLET) [Concomitant]
     Route: 048
  14. MULTI-VITAMIN [Concomitant]
  15. LEXAPRO [Concomitant]
     Route: 048
  16. FLOMAX [Concomitant]
  17. OXYCODONE HCL [Concomitant]
     Indication: PAIN
  18. LISINOPRIL [Concomitant]
     Route: 048
  19. DULCOLAX [Concomitant]
  20. MILK OF MAGNESIA TAB [Concomitant]
     Route: 048
  21. MAGNESIUM GLUCONATE [Concomitant]
     Route: 048
  22. HYDROCHLOROTHIAZIDE AND TRIAMTERENE [Concomitant]
  23. ZANAFLEX [Concomitant]
     Route: 048

REACTIONS (4)
  - BLADDER CANCER STAGE III [None]
  - BONE NEOPLASM MALIGNANT [None]
  - FEMUR FRACTURE [None]
  - URINARY TRACT INFECTION [None]
